FAERS Safety Report 7179592 (Version 2)
Quarter: 2013Q3

REPORT INFORMATION
  Report Type: Report from Study
  Country: JP (occurrence: JP)
  Receive Date: 20091117
  Receipt Date: 20130809
  Transmission Date: 20140515
  Serious: Yes (Hospitalization)
  Sender: FDA-Public Use
  Company Number: JP-ABBOTT-09P-087-0608654-00

PATIENT
  Age: 43 Year
  Sex: Male

DRUGS (19)
  1. RITONAVIR [Suspect]
     Indication: HIV INFECTION
     Route: 048
     Dates: start: 19991120, end: 20031202
  2. RITONAVIR [Suspect]
     Route: 048
     Dates: start: 20040615, end: 20080604
  3. RITONAVIR [Suspect]
     Route: 048
     Dates: start: 20080613, end: 20110822
  4. RITONAVIR [Suspect]
     Route: 048
     Dates: start: 20110823
  5. LAMIVUDINE [Concomitant]
     Indication: HIV INFECTION
     Route: 048
     Dates: start: 19970417, end: 19970514
  6. LAMIVUDINE [Concomitant]
     Route: 048
     Dates: start: 19971002, end: 19991031
  7. LAMIVUDINE [Concomitant]
     Route: 048
     Dates: start: 19991101, end: 20030331
  8. LAMIVUDINE [Concomitant]
     Route: 048
     Dates: start: 20030401, end: 20031203
  9. LAMIVUDINE [Concomitant]
     Route: 048
     Dates: start: 20040420, end: 20080604
  10. LAMIVUDINE [Concomitant]
     Route: 048
     Dates: start: 20080613
  11. ABACAVIR SULFATE [Concomitant]
     Indication: HIV INFECTION
     Route: 048
     Dates: start: 20040420, end: 20080604
  12. ABACAVIR SULFATE [Concomitant]
     Route: 048
     Dates: start: 20080613
  13. ATAZANAVIR [Concomitant]
     Indication: HIV INFECTION
     Route: 048
     Dates: start: 20040420, end: 20040614
  14. ATAZANAVIR [Concomitant]
     Route: 048
     Dates: start: 20040615, end: 20080604
  15. FOSAMPRENAVIR [Concomitant]
     Indication: HIV INFECTION
     Route: 048
     Dates: start: 20080613
  16. RISPERIDONE [Concomitant]
     Indication: PRODUCT USED FOR UNKNOWN INDICATION
     Dates: start: 20090401
  17. LOXOPROFEN [Concomitant]
     Indication: PRODUCT USED FOR UNKNOWN INDICATION
     Dates: start: 20100730, end: 20101006
  18. MAGNESIUM OXIDE [Concomitant]
     Indication: PRODUCT USED FOR UNKNOWN INDICATION
     Dates: start: 20100730, end: 20100806
  19. ALLOPURINOL [Concomitant]

REACTIONS (1)
  - Renal failure acute [Recovered/Resolved]
